FAERS Safety Report 9003502 (Version 2)
Quarter: 2013Q1

REPORT INFORMATION
  Report Type: Spontaneous
  Country: US (occurrence: US)
  Receive Date: 20130108
  Receipt Date: 20130131
  Transmission Date: 20140127
  Serious: Yes (Death)
  Sender: FDA-Public Use
  Company Number: US-GILEAD-2013-0067422

PATIENT
  Sex: Female

DRUGS (15)
  1. LETAIRIS [Suspect]
     Indication: PULMONARY HYPERTENSION
     Dosage: 5 MG, QD
     Route: 048
     Dates: start: 20121031
  2. LETAIRIS [Suspect]
     Indication: CREST SYNDROME
  3. ADCIRCA [Concomitant]
  4. POTASSIUM CHLORIDE [Concomitant]
  5. PEPCID                             /00706001/ [Concomitant]
  6. SURFAK [Concomitant]
  7. CELLCEPT                           /01275102/ [Concomitant]
  8. PREDNISONE [Concomitant]
  9. MILK OF MAGNESIA [Concomitant]
  10. ATIVAN [Concomitant]
  11. THORAZINE                          /00011901/ [Concomitant]
  12. ROXANOL [Concomitant]
  13. TYLENOL /00020001/ [Concomitant]
  14. VENTOLIN                           /00139501/ [Concomitant]
  15. MS CONTIN [Concomitant]

REACTIONS (2)
  - Scleroderma [Fatal]
  - Pulmonary arterial hypertension [Fatal]
